FAERS Safety Report 6539025-9 (Version None)
Quarter: 2010Q1

REPORT INFORMATION
  Report Type: 
  Country: None (occurrence: None)
  Receive Date: 20100115
  Receipt Date: 20100105
  Transmission Date: 20100710
  Serious: Yes (Life-Threatening, Other)
  Sender: FDA-Public Use
  Company Number: US-BAYER-201010889GPV

PATIENT
  Age: 78 Year
  Sex: Male

DRUGS (2)
  1. SOTALOL [Suspect]
     Indication: ATRIAL FIBRILLATION
     Dosage: TOTAL DAILY DOSE: 160 MG
     Route: 048
  2. DILTIAZEM [Concomitant]
     Indication: ATRIAL FIBRILLATION

REACTIONS (2)
  - TORSADE DE POINTES [None]
  - VENTRICULAR TACHYCARDIA [None]
